FAERS Safety Report 8617887-9 (Version None)
Quarter: 2012Q3

REPORT INFORMATION
  Report Type: 
  Country: None (occurrence: None)
  Receive Date: 20120824
  Receipt Date: 20120320
  Transmission Date: 20120928
  Serious: No
  Sender: FDA-Public Use
  Company Number: US-ASTRAZENECA-2012SE18951

PATIENT
  Sex: Female

DRUGS (1)
  1. SYMBICORT [Suspect]
     Indication: ASTHMA
     Dosage: TWO PUFFS BID
     Route: 055
     Dates: start: 20120318

REACTIONS (6)
  - ASTHMA [None]
  - PALPITATIONS [None]
  - TREMOR [None]
  - MULTIPLE ALLERGIES [None]
  - BRONCHITIS [None]
  - PAIN [None]
